FAERS Safety Report 6914263-1 (Version None)
Quarter: 2010Q3

REPORT INFORMATION
  Report Type: 
  Country: None (occurrence: None)
  Receive Date: 20100809
  Receipt Date: 20100802
  Transmission Date: 20110219
  Serious: Yes (Other)
  Sender: FDA-Public Use
  Company Number: A0874461A

PATIENT
  Sex: Female
  Weight: 12 kg

DRUGS (2)
  1. AMOXIL [Suspect]
     Indication: TONSILLITIS
     Dosage: 4ML TWICE PER DAY
     Route: 065
     Dates: start: 20100726, end: 20100730
  2. IBUPROFEN [Concomitant]
     Dosage: 10DROP FOUR TIMES PER DAY
     Dates: start: 20100726, end: 20100728

REACTIONS (5)
  - APATHY [None]
  - ERYTHEMA [None]
  - PNEUMONIA [None]
  - PYREXIA [None]
  - RHINORRHOEA [None]
